FAERS Safety Report 9531660 (Version 2)
Quarter: 2013Q4

REPORT INFORMATION
  Report Type: Spontaneous
  Country: US (occurrence: US)
  Receive Date: 20130918
  Receipt Date: 20131007
  Transmission Date: 20140711
  Serious: Yes (Hospitalization)
  Sender: FDA-Public Use
  Company Number: US-JNJFOC-20130906393

PATIENT
  Age: 68 Year
  Sex: Male
  Weight: 67.13 kg

DRUGS (3)
  1. ZYTIGA [Suspect]
     Indication: PROSTATE CANCER
     Route: 048
     Dates: start: 20130307
  2. PREDNISONE [Suspect]
     Indication: PROSTATE CANCER
     Route: 048
     Dates: start: 20130317
  3. ALENE [Suspect]
     Indication: BONE PAIN
     Route: 048
     Dates: start: 20121201

REACTIONS (1)
  - Diverticular perforation [Recovered/Resolved]
